FAERS Safety Report 5525266-6 (Version None)
Quarter: 2007Q4

REPORT INFORMATION
  Report Type: 
  Country: None (occurrence: None)
  Receive Date: 20071126
  Receipt Date: 20071120
  Transmission Date: 20080405
  Serious: Yes (Hospitalization)
  Sender: FDA-Public Use
  Company Number: GB-BRISTOL-MYERS SQUIBB COMPANY-13991138

PATIENT
  Age: 72 Year
  Sex: Male

DRUGS (1)
  1. SINEMET CR [Suspect]
     Dosage: REDUCED TO 4TAB DAILY,THEN 3TAB DAILY.5 DOSAGE FORM=5 TAB;STRENGTH CARBIDOPA 25MG/LEVODOPA 200MG

REACTIONS (4)
  - ANGER [None]
  - CONFUSIONAL STATE [None]
  - LOSS OF CONSCIOUSNESS [None]
  - PSYCHOTIC DISORDER [None]
